FAERS Safety Report 6240094-4 (Version None)
Quarter: 2009Q2

REPORT INFORMATION
  Report Type: 
  Country: None (occurrence: None)
  Receive Date: 20090617
  Receipt Date: 20080220
  Transmission Date: 20091009
  Serious: No
  Sender: FDA-Public Use
  Company Number: 272519

PATIENT
  Age: 66 Year
  Sex: Male

DRUGS (4)
  1. LEVEMIR [Suspect]
     Indication: TYPE 2 DIABETES MELLITUS
     Dosage: SUBCUTANEOUS
     Route: 058
  2. GLYBURIDE [Concomitant]
  3. GLUCOPHAGE [Concomitant]
  4. METFORMIN [Concomitant]

REACTIONS (2)
  - BLOOD GLUCOSE INCREASED [None]
  - NAUSEA [None]
